FAERS Safety Report 5839526-2 (Version None)
Quarter: 2008Q3

REPORT INFORMATION
  Report Type: 
  Country: None (occurrence: None)
  Receive Date: 20080807
  Receipt Date: 20080730
  Transmission Date: 20090109
  Serious: Yes (Hospitalization, Other)
  Sender: FDA-Public Use
  Company Number: 163-20785-08070465

PATIENT
  Age: 80 Year
  Sex: Female

DRUGS (3)
  1. THALOMID [Suspect]
     Indication: MULTIPLE MYELOMA
     Dosage: 100 MG, 50MG, DAILY, ORAL
     Route: 048
     Dates: start: 20070123, end: 20070601
  2. THALOMID [Suspect]
     Indication: MULTIPLE MYELOMA
     Dosage: 100 MG, 50MG, DAILY, ORAL
     Route: 048
     Dates: start: 20070807, end: 20080201
  3. PROCRIT [Concomitant]

REACTIONS (7)
  - CARDIAC FAILURE [None]
  - CHRONIC OBSTRUCTIVE PULMONARY DISEASE [None]
  - DRUG INEFFECTIVE [None]
  - HAEMOGLOBIN DECREASED [None]
  - METASTASES TO BONE [None]
  - OEDEMA PERIPHERAL [None]
  - SOMNOLENCE [None]
